FAERS Safety Report 7572460-9 (Version None)
Quarter: 2011Q2

REPORT INFORMATION
  Report Type: 
  Country: None (occurrence: None)
  Receive Date: 20110624
  Receipt Date: 20110610
  Transmission Date: 20111010
  Serious: Yes (Death)
  Sender: FDA-Public Use
  Company Number: GB-GENENTECH-315859

PATIENT
  Sex: Male

DRUGS (1)
  1. LUCENTIS [Suspect]
     Indication: PRODUCT USED FOR UNKNOWN INDICATION
     Dosage: UNK DF, UNKNOWN
     Route: 031
     Dates: end: 20081126

REACTIONS (3)
  - PULMONARY OEDEMA [None]
  - DIVERTICULUM [None]
  - UROSEPSIS [None]
